FAERS Safety Report 9478212 (Version 1)
Quarter: 2013Q3

REPORT INFORMATION
  Report Type: Spontaneous
  Country: US (occurrence: US)
  Receive Date: 20130827
  Receipt Date: 20130827
  Transmission Date: 20140515
  Serious: Yes (Other)
  Sender: FDA-Public Use
  Company Number: US-PFIZER INC-2013246799

PATIENT
  Age: 55 Year
  Sex: Male
  Weight: 99.77 kg

DRUGS (1)
  1. LYRICA [Suspect]
     Indication: NEUROPATHY PERIPHERAL
     Dosage: UNK (FLACTUATING DOSE TO 75MG AND 100 MG), 3X/DAY
     Dates: start: 2011

REACTIONS (1)
  - Liver disorder [Unknown]
